FAERS Safety Report 24697036 (Version 1)
Quarter: 2024Q4

REPORT INFORMATION
  Report Type: Spontaneous
  Country: FR (occurrence: FR)
  Receive Date: 20241204
  Receipt Date: 20241204
  Transmission Date: 20250114
  Serious: Yes (Hospitalization, Other)
  Sender: PFIZER
  Company Number: None

PATIENT
  Age: 31 Year
  Sex: Female
  Weight: 55 kg

DRUGS (4)
  1. CYTARABINE [Suspect]
     Active Substance: CYTARABINE
     Indication: Acute myeloid leukaemia
     Dosage: AT INTERMEDIATE DOSE DAY 1
     Route: 058
     Dates: start: 20240614
  2. FLUDARABINE PHOSPHATE [Suspect]
     Active Substance: FLUDARABINE PHOSPHATE
     Indication: Acute myeloid leukaemia
     Dosage: 40 MG/M2/D I.E 53,25 MG/D FROM D-6 TO D-3 (TOTAL DOSE OF 225 MG)
     Route: 042
     Dates: start: 20240816
  3. BUSULFAN [Suspect]
     Active Substance: BUSULFAN
     Indication: Acute myeloid leukaemia
     Dosage: 3,25 MG/KG/D E.I 177 MG/D FROM D-6 TO D-3 (TOTAL DOSE OF 708 MG).
     Route: 042
     Dates: start: 20240816
  4. CYCLOSPORINE [Suspect]
     Active Substance: CYCLOSPORINE
     Indication: Prophylaxis against graft versus host disease
     Dosage: 3 MG/KG/D ON 24 H INITIATED AT D1 THEN ADAPTED TO PLASMATIC DOSINGS
     Route: 042
     Dates: start: 20240720

REACTIONS (1)
  - Pulmonary hypertension [Not Recovered/Not Resolved]

NARRATIVE: CASE EVENT DATE: 20241104
